FAERS Safety Report 4750208-0 (Version None)
Quarter: 2005Q3

REPORT INFORMATION
  Report Type: 
  Country: None (occurrence: None)
  Receive Date: 20050818
  Receipt Date: 20050815
  Transmission Date: 20060218
  Serious: Yes (Other)
  Sender: FDA-Public Use
  Company Number: 142138USA

PATIENT
  Age: 43 Year
  Sex: Female

DRUGS (3)
  1. COPAXONE [Suspect]
     Indication: MULTIPLE SCLEROSIS
     Dosage: 20 MILLIGRAM QD SUBCUTANEOUS
     Route: 058
     Dates: start: 20031201
  2. COPAXONE [Suspect]
  3. PAXIL [Concomitant]

REACTIONS (4)
  - ERYTHEMA [None]
  - INCREASED TENDENCY TO BRUISE [None]
  - INJECTION SITE HAEMORRHAGE [None]
  - INJECTION SITE ULCER [None]
